FAERS Safety Report 21120048 (Version 1)
Quarter: 2022Q3

REPORT INFORMATION
  Report Type: Spontaneous
  Country: US (occurrence: US)
  Receive Date: 20220722
  Receipt Date: 20220722
  Transmission Date: 20221027
  Serious: No
  Sender: FDA-Public Use
  Company Number: US-ORGANON-O2207USA001687

PATIENT
  Age: 18 Year
  Sex: Female
  Weight: 49.4 kg

DRUGS (1)
  1. NEXPLANON [Suspect]
     Active Substance: ETONOGESTREL
     Indication: Contraception
     Dosage: 1 IMPLANT OF 68MG EVERY 3 YEARS (LEFT ARM)
     Route: 059
     Dates: start: 20211030

REACTIONS (3)
  - Menometrorrhagia [Not Recovered/Not Resolved]
  - Weight decreased [Unknown]
  - Polymenorrhoea [Not Recovered/Not Resolved]

NARRATIVE: CASE EVENT DATE: 20211030
